FAERS Safety Report 10562607 (Version 1)
Quarter: 2014Q4

REPORT INFORMATION
  Report Type: Spontaneous
  Country: US (occurrence: None)
  Receive Date: 20141103
  Receipt Date: 20141103
  Transmission Date: 20150529
  Serious: No
  Sender: FDA-Public Use
  Company Number: None

PATIENT
  Age: 41 Year
  Sex: Male
  Weight: 119 kg

DRUGS (1)
  1. VARDENAFIL [Suspect]
     Active Substance: VARDENAFIL
     Indication: SEXUAL DYSFUNCTION
     Route: 048
     Dates: start: 20100201, end: 20100404

REACTIONS (2)
  - Eye swelling [None]
  - Swelling face [None]

NARRATIVE: CASE EVENT DATE: 20100408
